FAERS Safety Report 12903931 (Version 1)
Quarter: 2016Q4

REPORT INFORMATION
  Report Type: Spontaneous
  Country: GB (occurrence: GB)
  Receive Date: 20161102
  Receipt Date: 20161102
  Transmission Date: 20170207
  Serious: Yes (Other)
  Sender: FDA-Public Use
  Company Number: GB-GLAXOSMITHKLINE-GB2016158823

PATIENT
  Age: 46 Year
  Sex: Female
  Weight: 125.18 kg

DRUGS (1)
  1. ORLISTAT [Suspect]
     Active Substance: ORLISTAT
     Indication: OVERWEIGHT
     Dosage: 120 MG, TID
     Route: 048
     Dates: start: 20160919, end: 20161014

REACTIONS (8)
  - Abdominal distension [Unknown]
  - Fatigue [Unknown]
  - Insomnia [Unknown]
  - Diarrhoea [Unknown]
  - Change of bowel habit [Unknown]
  - Pain [Not Recovered/Not Resolved]
  - Headache [Unknown]
  - Abdominal pain [Unknown]

NARRATIVE: CASE EVENT DATE: 20160922
